FAERS Safety Report 17610198 (Version 1)
Quarter: 2020Q2

REPORT INFORMATION
  Report Type: Spontaneous
  Country: US (occurrence: US)
  Receive Date: 20200401
  Receipt Date: 20200401
  Transmission Date: 20200713
  Serious: Yes (Other)
  Sender: FDA-Public Use
  Company Number: US-GLAXOSMITHKLINE-US2020AMR051129

PATIENT
  Age: 69 Year
  Sex: Female

DRUGS (2)
  1. WELLBUTRIN SR [Suspect]
     Active Substance: BUPROPION HYDROCHLORIDE
     Indication: DEPRESSIVE SYMPTOM
     Dosage: 150 MG, BID
     Route: 065
  2. BUPROPION SR [Suspect]
     Active Substance: BUPROPION HYDROCHLORIDE
     Indication: DEPRESSIVE SYMPTOM
     Dosage: 150 MG, BID
     Route: 065

REACTIONS (2)
  - Breast cancer [Unknown]
  - Drug ineffective [Unknown]
